FAERS Safety Report 8883376 (Version 1)
Quarter: 2012Q4

REPORT INFORMATION
  Report Type: 
  Country: BR (occurrence: BR)
  Receive Date: 20121102
  Receipt Date: 20121102
  Transmission Date: 20130627
  Serious: Yes (Other)
  Sender: FDA-Public Use
  Company Number: BR-PFIZER INC-2012270871

PATIENT
  Age: 83 Year
  Sex: Female

DRUGS (3)
  1. XALATAN [Suspect]
     Indication: INTRAOCULAR PRESSURE INCREASED
     Dosage: 1 drop in each eye, 1x/day
     Route: 047
     Dates: start: 2008
  2. ALPRAZOLAM [Concomitant]
     Dosage: 1 tablet, 4x/day
  3. QUETIAPINE [Concomitant]
     Dosage: 1 tablet, 3x/day

REACTIONS (1)
  - Dementia Alzheimer^s type [Not Recovered/Not Resolved]
